FAERS Safety Report 7648230-X (Version None)
Quarter: 2011Q3

REPORT INFORMATION
  Report Type: 
  Country: None (occurrence: None)
  Receive Date: 20110801
  Receipt Date: 20110726
  Transmission Date: 20111222
  Serious: No
  Sender: FDA-Public Use
  Company Number: US-PFIZER INC-2011170226

PATIENT
  Sex: Female
  Weight: 65.8 kg

DRUGS (4)
  1. ESTRING [Suspect]
     Indication: COITAL BLEEDING
     Dosage: 2 MG, UNK
     Route: 067
     Dates: start: 20110302
  2. FLUTICASONE [Concomitant]
     Indication: HYPERSENSITIVITY
     Dosage: UNK
     Route: 045
  3. ESTRING [Suspect]
     Dosage: 2 MG, UNK
     Route: 067
     Dates: start: 20110603
  4. ZYRTEC [Concomitant]
     Indication: HYPERSENSITIVITY
     Dosage: UNK

REACTIONS (3)
  - SKIN WRINKLING [None]
  - HOT FLUSH [None]
  - DYSPAREUNIA [None]
